FAERS Safety Report 11619606 (Version 1)
Quarter: 2015Q4

REPORT INFORMATION
  Report Type: Spontaneous
  Country: BR (occurrence: BR)
  Receive Date: 20151012
  Receipt Date: 20151012
  Transmission Date: 20160304
  Serious: Yes (Other)
  Sender: FDA-Public Use
  Company Number: BR-JNJFOC-20151003219

PATIENT
  Sex: Female

DRUGS (2)
  1. CLEXANE [Suspect]
     Active Substance: ENOXAPARIN SODIUM
     Indication: PRODUCT USED FOR UNKNOWN INDICATION
     Route: 065
  2. INFLIXIMAB, RECOMBINANT [Suspect]
     Active Substance: INFLIXIMAB
     Indication: CROHN^S DISEASE
     Route: 042

REACTIONS (7)
  - Antiphospholipid syndrome [Unknown]
  - Hypertrophy [Unknown]
  - Portal vein thrombosis [Unknown]
  - Anal stenosis [Unknown]
  - Exposure during pregnancy [Not Recovered/Not Resolved]
  - Drug ineffective [Unknown]
  - Fistula [Unknown]
